FAERS Safety Report 5841841-3 (Version None)
Quarter: 2008Q3

REPORT INFORMATION
  Report Type: 
  Country: None (occurrence: None)
  Receive Date: 20080812
  Receipt Date: 20080811
  Transmission Date: 20090109
  Serious: Yes (Life-Threatening)
  Sender: FDA-Public Use
  Company Number: B0532718A

PATIENT
  Age: 61 Year
  Sex: Female
  Weight: 48 kg

DRUGS (1)
  1. AUGMENTIN '125' [Suspect]
     Indication: ANTIBIOTIC THERAPY
     Route: 042
     Dates: start: 20080704

REACTIONS (4)
  - HYPOTENSION [None]
  - PULMONARY OEDEMA [None]
  - TACHYCARDIA [None]
  - URTICARIA [None]
